FAERS Safety Report 20949030 (Version 1)
Quarter: 2022Q2

REPORT INFORMATION
  Report Type: Spontaneous
  Country: AU (occurrence: AU)
  Receive Date: 20220613
  Receipt Date: 20220613
  Transmission Date: 20220721
  Serious: Yes (Hospitalization, Other)
  Sender: FDA-Public Use
  Company Number: AU-CELGENE-AUS-20210606429

PATIENT
  Age: 79 Year
  Sex: Male
  Weight: 87 kg

DRUGS (36)
  1. AZACITIDINE [Suspect]
     Active Substance: AZACITIDINE
     Indication: Myelodysplastic syndrome
     Dosage: FREQUENCY TEXT: DAY 1-5 AND 8-9 OF EACH 28-DAY CYCLE
     Route: 058
     Dates: start: 20210503, end: 20210612
  2. AZACITIDINE [Suspect]
     Active Substance: AZACITIDINE
     Dosage: FREQUENCY TEXT: 7 DAYS WITHIN THE FIRST 9 CALENDAR DAYS OF EACH 28-DAY CYCLE
     Route: 058
     Dates: start: 20210705
  3. VENETOCLAX [Suspect]
     Active Substance: VENETOCLAX
     Indication: Acute myeloid leukaemia
     Dosage: FREQUENCY TEXT: NOT PROVIDED
     Route: 048
  4. ONDANSETRON [Concomitant]
     Active Substance: ONDANSETRON
     Indication: Nausea
     Dosage: 1 AS REQUIRED
     Route: 048
  5. ONDANSETRON [Concomitant]
     Active Substance: ONDANSETRON
     Dosage: FREQUENCY TEXT: NOT PROVIDED?AS NEEDED
     Route: 048
     Dates: start: 20210528
  6. PREDNISOLONE [Concomitant]
     Active Substance: PREDNISOLONE
     Indication: Rheumatoid arthritis
     Dosage: 1 IN 1 D
     Route: 048
     Dates: start: 2018
  7. PREDNISOLONE [Concomitant]
     Active Substance: PREDNISOLONE
     Indication: Antiinflammatory therapy
     Dosage: 5 MILLIGRAM
     Route: 048
     Dates: start: 20210528
  8. TEMAZEPAM [Concomitant]
     Active Substance: TEMAZEPAM
     Indication: Insomnia
     Dosage: 1 AS REQUIRED
     Route: 048
  9. TEMAZEPAM [Concomitant]
     Active Substance: TEMAZEPAM
     Dosage: AS NEEDED
     Route: 048
     Dates: start: 20210603
  10. ALLOPURINOL [Concomitant]
     Active Substance: ALLOPURINOL
     Indication: Prophylaxis
     Dosage: 300 MG
     Route: 048
  11. ALLOPURINOL [Concomitant]
     Active Substance: ALLOPURINOL
     Dosage: NOT PROVIDED
     Route: 048
     Dates: start: 20210430
  12. CEPHALEXIN [Concomitant]
     Active Substance: CEPHALEXIN
     Indication: Antibiotic prophylaxis
     Dosage: 2 IN 1 D
     Route: 048
  13. CEPHALEXIN [Concomitant]
     Active Substance: CEPHALEXIN
     Dosage: 2000 MILLIGRAM
     Route: 048
     Dates: start: 20210610
  14. SULFASALAZINE [Concomitant]
     Active Substance: SULFASALAZINE
     Indication: Rheumatoid arthritis
     Dosage: 1 GRAM
     Route: 048
     Dates: start: 2018
  15. ESOMEPRAZOLE [Concomitant]
     Active Substance: ESOMEPRAZOLE
     Indication: Gastrooesophageal reflux prophylaxis
     Dosage: 20 MILLIGRAM
     Route: 048
     Dates: start: 2013
  16. NEBIVOLOL [Concomitant]
     Active Substance: NEBIVOLOL
     Indication: Atrial fibrillation
     Dosage: 5 MILLIGRAM
     Route: 048
     Dates: start: 2017
  17. ATORVASTATIN [Concomitant]
     Active Substance: ATORVASTATIN
     Indication: Acute myocardial infarction
     Dosage: 10 MILLIGRAM
     Route: 048
     Dates: start: 2009, end: 20210531
  18. RAMIPRIL [Concomitant]
     Active Substance: RAMIPRIL
     Indication: Atrial fibrillation
     Dosage: 2.5 MILLIGRAM
     Route: 048
     Dates: start: 2017, end: 20210609
  19. CHOLECALCIFEROL [Concomitant]
     Active Substance: CHOLECALCIFEROL
     Indication: Prophylaxis
     Dosage: 25 MICROGRAM
     Route: 048
     Dates: start: 2013
  20. FUROSEMIDE [Concomitant]
     Active Substance: FUROSEMIDE
     Indication: Acute myocardial infarction
     Dosage: 20 MILLIGRAM
     Route: 048
     Dates: start: 2017
  21. TAMSULOSIN [Concomitant]
     Active Substance: TAMSULOSIN
     Indication: Benign prostatic hyperplasia
     Dosage: 400 MICROGRAM
     Route: 048
     Dates: start: 2017
  22. MAGNESIUM [Concomitant]
     Active Substance: MAGNESIUM
     Indication: Acute myocardial infarction
     Dosage: 2000 MILLIGRAM
     Route: 048
     Dates: start: 2017
  23. POSACONAZOLE [Concomitant]
     Active Substance: POSACONAZOLE
     Indication: Antifungal prophylaxis
     Dosage: 1200 MILLIGRAM
     Route: 048
     Dates: start: 20210510, end: 20210604
  24. POSACONAZOLE [Concomitant]
     Active Substance: POSACONAZOLE
     Dosage: 600 MILLIGRAM
     Route: 048
     Dates: start: 20210108
  25. VALACYCLOVIR [Concomitant]
     Active Substance: VALACYCLOVIR HYDROCHLORIDE
     Indication: Antiviral prophylaxis
     Dosage: 500 MILLIGRAM
     Route: 048
     Dates: start: 20210430
  26. LACTULOSE [Concomitant]
     Active Substance: LACTULOSE
     Indication: Constipation prophylaxis
     Dosage: FREQUENCY TEXT: NOT PROVIDED?AS NEEDED
     Route: 048
     Dates: start: 20210530
  27. DOCUSATE SODIUM\SENNOSIDES A AND B [Concomitant]
     Active Substance: DOCUSATE SODIUM\SENNOSIDES A AND B
     Indication: Constipation prophylaxis
     Dosage: UNIT DOSE : 2 TABLET?FREQUENCY TEXT: NOT PROVIDED?AS NEEDED
     Route: 048
     Dates: start: 20210529
  28. ACETAMINOPHEN [Concomitant]
     Active Substance: ACETAMINOPHEN
     Indication: Analgesic therapy
     Dosage: FREQUENCY TEXT: NOT PROVIDED?AS NEEDED
     Route: 048
     Dates: start: 20210531
  29. APIXABAN [Concomitant]
     Active Substance: APIXABAN
     Indication: Venous thrombosis
     Dosage: 40 MILLIGRAM
     Route: 048
     Dates: start: 20210603, end: 20210607
  30. ENOXAPARIN [Concomitant]
     Active Substance: ENOXAPARIN
     Indication: Venous thrombosis
     Dosage: 180 MILLIGRAM
     Route: 058
     Dates: start: 20210607
  31. ENOXAPARIN [Concomitant]
     Active Substance: ENOXAPARIN
     Indication: Cavernous sinus thrombosis
     Dosage: 320 MILLIGRAM
     Route: 058
     Dates: start: 20210610, end: 20210614
  32. ENOXAPARIN [Concomitant]
     Active Substance: ENOXAPARIN
     Dosage: 240 MILLIGRAM
     Route: 058
     Dates: start: 20210620, end: 20210622
  33. ENOXAPARIN [Concomitant]
     Active Substance: ENOXAPARIN
     Dosage: 160 MILLIGRAM
     Route: 058
     Dates: start: 20210623
  34. POTASSIUM CHLORIDE [Concomitant]
     Active Substance: POTASSIUM CHLORIDE
     Indication: Hypokalaemia
     Dosage: NOT PROVIDED
     Route: 048
     Dates: start: 20210605, end: 20210605
  35. ROSUVASTATIN [Concomitant]
     Active Substance: ROSUVASTATIN
     Indication: Cardiovascular event prophylaxis
     Dosage: 5 MILLIGRAM
     Route: 048
     Dates: start: 20210604
  36. FILGRASTIM [Concomitant]
     Active Substance: FILGRASTIM
     Indication: Febrile neutropenia
     Dosage: 300 MICROGRAM
     Route: 048
     Dates: start: 20210530

REACTIONS (1)
  - Abdominal wall haemorrhage [Recovered/Resolved]

NARRATIVE: CASE EVENT DATE: 20210614
